FAERS Safety Report 5621314-3 (Version None)
Quarter: 2008Q1

REPORT INFORMATION
  Report Type: 
  Country: None (occurrence: None)
  Receive Date: 20080211
  Receipt Date: 20080111
  Transmission Date: 20080703
  Serious: No
  Sender: FDA-Public Use
  Company Number: US-BAYER-200811179NA

PATIENT
  Age: 14 Year
  Sex: Female
  Weight: 61 kg

DRUGS (2)
  1. YAZ [Suspect]
     Route: 048
     Dates: start: 20060101, end: 20070901
  2. YAZ [Suspect]
     Route: 048
     Dates: start: 20071001

REACTIONS (1)
  - NIPPLE EXUDATE BLOODY [None]
